FAERS Safety Report 19951164 (Version 1)
Quarter: 2021Q4

REPORT INFORMATION
  Report Type: Spontaneous
  Country: FR (occurrence: FR)
  Receive Date: 20211014
  Receipt Date: 20211014
  Transmission Date: 20220303
  Serious: Yes (Death, Hospitalization, Other)
  Sender: FDA-Public Use
  Company Number: FR-AFSSAPS-CN20212944

PATIENT
  Age: 98 Year
  Sex: Female
  Weight: 60.45 kg

DRUGS (12)
  1. ACETAMINOPHEN [Suspect]
     Active Substance: ACETAMINOPHEN
     Indication: Toxicity to various agents
     Dosage: 4 GRAM
     Route: 048
     Dates: start: 20210411, end: 20210411
  2. WARFARIN SODIUM [Concomitant]
     Active Substance: WARFARIN SODIUM
     Indication: Product used for unknown indication
     Dosage: 2 MILLIGRAM, 0.5 CP IN THE EVENING TWO CONSECUTIVE EVENINGS, 1 CP THE THIRD
     Route: 048
  3. FERROUS SULFATE [Concomitant]
     Active Substance: FERROUS SULFATE
     Indication: Anaemia
     Dosage: 80 MILLIGRAM, DAILY
     Route: 048
  4. ZOLPIDEM TARTRATE [Concomitant]
     Active Substance: ZOLPIDEM TARTRATE
     Indication: Depressive symptom
     Dosage: 5 MILLIGRAM, DAILY
     Route: 048
  5. OXAZEPAM 10 mg AYERST, comprime [Concomitant]
     Indication: Depressive symptom
     Dosage: 15 MILLIGRAM, 0.5-0.5-0.5
     Route: 048
  6. ALLOPURINOL ALMUS 100 mg, comprime [Concomitant]
     Indication: Gout
     Dosage: 100 MILLIGRAM, DAILY
     Route: 048
  7. POLYETHYLENE GLYCOL 4000 [Concomitant]
     Active Substance: POLYETHYLENE GLYCOL 4000
     Indication: Constipation
     Dosage: 1 DOSAGE FORM, DAILY, IF NECESSARY
     Route: 048
  8. POTASSIUM CHLORIDE [Concomitant]
     Active Substance: POTASSIUM CHLORIDE
     Indication: Hypokalaemia
     Dosage: 2400 MILLIGRAM, DAILY, 600MG 2-0-2
     Route: 048
  9. MORPHINE SULFATE [Concomitant]
     Active Substance: MORPHINE SULFATE
     Indication: Neuralgia
     Dosage: 10 MILLIGRAM, DAILY, 1-0-1
     Route: 048
  10. FUROSEMIDE [Concomitant]
     Active Substance: FUROSEMIDE
     Indication: Hypertension
     Dosage: 120 MILLIGRAM, DAILY, 2-1-0
     Route: 048
  11. AMIODARONE (CHLORHYDRATE DE) [Concomitant]
     Indication: Cardiac failure
     Dosage: 200 MILLIGRAM, 1-0-05D-7
     Route: 048
  12. NICARDIPINE HYDROCHLORIDE [Concomitant]
     Active Substance: NICARDIPINE HYDROCHLORIDE
     Indication: Hypertension
     Dosage: 20 MILLIGRAM, DAILY
     Route: 048

REACTIONS (2)
  - Intentional overdose [Recovered/Resolved]
  - Nausea [Recovered/Resolved]

NARRATIVE: CASE EVENT DATE: 20210411
